FAERS Safety Report 16483217 (Version 2)
Quarter: 2019Q3

REPORT INFORMATION
  Report Type: Spontaneous
  Country: US (occurrence: US)
  Receive Date: 20190627
  Receipt Date: 20190701
  Transmission Date: 20191004
  Serious: Yes (Other)
  Sender: FDA-Public Use
  Company Number: US-PFIZER INC-2019274610

PATIENT
  Age: 61 Year
  Sex: Female

DRUGS (1)
  1. ZYVOX [Suspect]
     Active Substance: LINEZOLID
     Dosage: UNK

REACTIONS (7)
  - Feeling hot [Unknown]
  - Macule [Unknown]
  - Drug interaction [Unknown]
  - Erythema [Unknown]
  - Staphylococcal infection [Unknown]
  - Drug intolerance [Unknown]
  - Burning sensation [Unknown]
